FAERS Safety Report 4692600-9 (Version None)
Quarter: 2005Q2

REPORT INFORMATION
  Report Type: 
  Country: None (occurrence: None)
  Receive Date: 20050617
  Receipt Date: 20050606
  Transmission Date: 20051028
  Serious: Yes (Death, Hospitalization)
  Sender: FDA-Public Use
  Company Number: NO-MERCK-0506NOR00010

PATIENT
  Age: 69 Year
  Sex: Male

DRUGS (7)
  1. VIOXX [Suspect]
     Indication: MONARTHRITIS
     Route: 048
     Dates: start: 20020430, end: 20040922
  2. NITROGLYCERIN [Concomitant]
     Indication: ANGINA PECTORIS
     Route: 065
  3. METOPROLOL TARTRATE [Concomitant]
     Route: 065
  4. ENALAPRILAT [Concomitant]
     Indication: HYPERTENSION
     Route: 065
  5. ZOCOR [Concomitant]
     Indication: ANGINA UNSTABLE
     Route: 065
  6. DIAZEPAM [Concomitant]
     Route: 065
  7. ASPIRIN AND MAGNESIUM OXIDE [Concomitant]
     Route: 065

REACTIONS (5)
  - CHEST PAIN [None]
  - DYSPNOEA [None]
  - FLATULENCE [None]
  - REGURGITATION OF FOOD [None]
  - SUDDEN DEATH [None]
